FAERS Safety Report 6910546-X (Version None)
Quarter: 2010Q3

REPORT INFORMATION
  Report Type: 
  Country: None (occurrence: None)
  Receive Date: 20100806
  Receipt Date: 20100730
  Transmission Date: 20110219
  Serious: Yes (Hospitalization)
  Sender: FDA-Public Use
  Company Number: ZA-BRISTOL-MYERS SQUIBB COMPANY-14980601

PATIENT
  Age: 54 Year
  Sex: Male
  Weight: 45 kg

DRUGS (3)
  1. CETUXIMAB [Suspect]
     Indication: NON-SMALL CELL LUNG CANCER
     Dosage: MOST RECENT INF: 28JAN2010 INTERRUPTED ON 04FEB2010
     Route: 042
     Dates: start: 20091130
  2. PACLITAXEL [Suspect]
     Indication: NON-SMALL CELL LUNG CANCER
     Dosage: MOST RECENT INF: 29JAN10,DAY 1 OF 21 DAY CYCLE INTERRUPTED ON 04FEB2010
     Route: 042
     Dates: start: 20091130
  3. CARBOPLATIN [Suspect]
     Indication: NON-SMALL CELL LUNG CANCER
     Dosage: 1 DF = 6 AUC,DAY 1 OF 21 DAY CYCLE,MOST RECENT INF:29JAN10 INTERRUPTED ON 04FEB2010
     Route: 042
     Dates: start: 20091130

REACTIONS (1)
  - CEREBROVASCULAR ACCIDENT [None]
